FAERS Safety Report 19505485 (Version 3)
Quarter: 2022Q1

REPORT INFORMATION
  Report Type: Report from Study
  Country: MX (occurrence: MX)
  Receive Date: 20210708
  Receipt Date: 20220212
  Transmission Date: 20220423
  Serious: Yes (Disabling)
  Sender: FDA-Public Use
  Company Number: MX-SA-SAC20210621000713

PATIENT
  Age: 38 Year
  Sex: Female
  Weight: 51 kg

DRUGS (1)
  1. TERIFLUNOMIDE [Suspect]
     Active Substance: TERIFLUNOMIDE
     Indication: Multiple sclerosis
     Dosage: 14 MG
     Route: 048
     Dates: start: 202104

REACTIONS (8)
  - Visual field defect [Unknown]
  - Tremor [Recovering/Resolving]
  - Gingival pain [Unknown]
  - Asthenia [Unknown]
  - Eye pain [Recovering/Resolving]
  - Acne [Recovering/Resolving]
  - Rash [Unknown]
  - Alopecia [Recovering/Resolving]

NARRATIVE: CASE EVENT DATE: 20210401
